FAERS Safety Report 14774290 (Version 4)
Quarter: 2018Q2

REPORT INFORMATION
  Report Type: Spontaneous
  Country: FR (occurrence: FR)
  Receive Date: 20180418
  Receipt Date: 20180611
  Transmission Date: 20180711
  Serious: Yes (Death, Other)
  Sender: FDA-Public Use
  Company Number: FR-ABBVIE-18P-056-2322604-00

PATIENT
  Age: 77 Year
  Sex: Male

DRUGS (1)
  1. VENETOCLAX. [Suspect]
     Active Substance: VENETOCLAX
     Indication: LEUKAEMIA
     Route: 048
     Dates: start: 20180404, end: 20180412

REACTIONS (7)
  - Lung infection [Unknown]
  - Chest pain [Unknown]
  - Gamma-glutamyltransferase increased [Recovering/Resolving]
  - Hypercalcaemia [Recovering/Resolving]
  - Blood uric acid increased [Recovering/Resolving]
  - Neoplasm [Fatal]
  - Creatinine renal clearance increased [Recovering/Resolving]

NARRATIVE: CASE EVENT DATE: 2018
